FAERS Safety Report 14559821 (Version 1)
Quarter: 2018Q1

REPORT INFORMATION
  Report Type: Spontaneous
  Country: US (occurrence: US)
  Receive Date: 20180220
  Receipt Date: 20180220
  Transmission Date: 20180509
  Serious: Yes (Hospitalization, Disabling, Other)
  Sender: FDA-Public Use
  Company Number: None

PATIENT
  Age: 45 Year
  Sex: Female
  Weight: 51.75 kg

DRUGS (1)
  1. ORAJEL INSTANT PAIN RELIEF SEVERE PM [Suspect]
     Active Substance: BENZALKONIUM CHLORIDE\BENZOCAINE\MENTHOL

REACTIONS (5)
  - Eye disorder [None]
  - Burning sensation [None]
  - Pain [None]
  - Soft tissue disorder [None]
  - Eyelid disorder [None]
